FAERS Safety Report 24311419 (Version 2)
Quarter: 2024Q3

REPORT INFORMATION
  Report Type: Spontaneous
  Country: DE (occurrence: DE)
  Receive Date: 20240912
  Receipt Date: 20240917
  Transmission Date: 20241017
  Serious: Yes (Other)
  Sender: SANDOZ
  Company Number: DE-PFIZER INC-202101553754

PATIENT
  Age: 42 Year
  Sex: Female

DRUGS (17)
  1. ABRAXANE [Suspect]
     Active Substance: PACLITAXEL
     Indication: Breast cancer
     Dosage: UNK (12XPAC, 10X NAB-PAC WEEKLY)
     Route: 065
     Dates: start: 201911, end: 202002
  2. CYCLOPHOSPHAMIDE [Suspect]
     Active Substance: CYCLOPHOSPHAMIDE
     Indication: Leukaemia
     Dosage: UNK
     Route: 065
  3. CYCLOPHOSPHAMIDE [Suspect]
     Active Substance: CYCLOPHOSPHAMIDE
     Indication: Breast cancer
     Dosage: UNK (NEOADJUVANT 4X ECDD)
     Route: 065
  4. CYCLOPHOSPHAMIDE [Suspect]
     Active Substance: CYCLOPHOSPHAMIDE
     Indication: Ovarian cancer
  5. EPIRUBICIN HYDROCHLORIDE [Suspect]
     Active Substance: EPIRUBICIN HYDROCHLORIDE
     Indication: Breast cancer
     Dosage: UNK (NEOADJUVANT 4X ECDD)
     Route: 065
  6. PACLITAXEL [Suspect]
     Active Substance: PACLITAXEL
     Indication: Breast cancer
     Dosage: 10X NAB-PAC WEEKLY
     Route: 065
     Dates: start: 201911, end: 202002
  7. PACLITAXEL [Suspect]
     Active Substance: PACLITAXEL
     Indication: Breast cancer
     Dosage: UNK (12XPAC)
     Route: 065
  8. PERTUZUMAB [Suspect]
     Active Substance: PERTUZUMAB
     Dosage: 1 UNK, TIW
     Route: 065
     Dates: start: 201911, end: 202002
  9. PERTUZUMAB [Suspect]
     Active Substance: PERTUZUMAB
     Dosage: UNK UNK, TIW
     Route: 065
     Dates: start: 202002
  10. PERTUZUMAB [Suspect]
     Active Substance: PERTUZUMAB
     Indication: Breast cancer
     Dosage: UNK (NEOADJUVANT)
     Route: 065
  11. TAMOXIFEN [Suspect]
     Active Substance: TAMOXIFEN
     Indication: Breast cancer
     Dosage: UNK
     Route: 065
  12. TRASTUZUMAB [Suspect]
     Active Substance: TRASTUZUMAB
     Indication: Off label use
     Dosage: UNK, Q3W (COMPLETION OF TRASTUZUMAB AD 1 YEAR)
     Route: 065
     Dates: start: 202002
  13. TRASTUZUMAB [Suspect]
     Active Substance: TRASTUZUMAB
     Dosage: UNK UNK, TIW (4X T-DM1 Q3W)
     Route: 065
     Dates: start: 20201111
  14. TRASTUZUMAB [Suspect]
     Active Substance: TRASTUZUMAB
     Indication: Breast cancer
     Dosage: UNK UNK, TIW 12XPAC, 10X NAB-PAC WEEKLY, (NEOADJUVANT)
     Route: 065
     Dates: start: 201911, end: 202002
  15. ADO-TRASTUZUMAB EMTANSINE [Suspect]
     Active Substance: ADO-TRASTUZUMAB EMTANSINE
     Dosage: UNK, TIW
     Route: 065
     Dates: start: 202002
  16. ADO-TRASTUZUMAB EMTANSINE [Suspect]
     Active Substance: ADO-TRASTUZUMAB EMTANSINE
     Indication: Product used for unknown indication
     Dosage: ADJ
     Route: 065
  17. ADO-TRASTUZUMAB EMTANSINE [Suspect]
     Active Substance: ADO-TRASTUZUMAB EMTANSINE
     Dosage: NEOADJUVANT
     Route: 065

REACTIONS (3)
  - Polyneuropathy [Unknown]
  - Neoplasm progression [Unknown]
  - Off label use [Unknown]

NARRATIVE: CASE EVENT DATE: 20191101
